FAERS Safety Report 10514348 (Version 11)
Quarter: 2014Q4

REPORT INFORMATION
  Report Type: Report from Study
  Country: FR (occurrence: FR)
  Receive Date: 20141013
  Receipt Date: 20141212
  Transmission Date: 20150528
  Serious: Yes (Hospitalization)
  Sender: FDA-Public Use
  Company Number: FR-MERCK-1410FRA004225

PATIENT
  Age: 82 Year
  Sex: Female
  Weight: 56 kg

DRUGS (11)
  1. OXYCONTIN [Concomitant]
     Active Substance: OXYCODONE HYDROCHLORIDE
     Indication: PAIN PROPHYLAXIS
     Dosage: 5 MG, BID
     Route: 048
     Dates: start: 20140722
  2. OXYNORMORO [Concomitant]
     Active Substance: OXYCODONE
     Indication: PAIN PROPHYLAXIS
     Dosage: TOTAL DAILY DOSE 5 MG, PRN
     Route: 048
     Dates: start: 20140722
  3. PERFALGAN [Concomitant]
     Active Substance: ACETAMINOPHEN
     Indication: PAIN PROPHYLAXIS
     Dosage: 5 MG, QD
     Route: 042
     Dates: start: 20140819
  4. ACETAMINOPHEN. [Concomitant]
     Active Substance: ACETAMINOPHEN
     Indication: PAIN PROPHYLAXIS
     Dosage: 0.33 G, TID
     Route: 048
     Dates: start: 20140722
  5. SOLU-MEDROL [Concomitant]
     Active Substance: METHYLPREDNISOLONE SODIUM SUCCINATE
     Indication: PAIN PROPHYLAXIS
     Dosage: 60 MG, QD
     Route: 042
     Dates: start: 20140918, end: 20140918
  6. MORPHINE [Concomitant]
     Active Substance: MORPHINE
     Indication: PAIN PROPHYLAXIS
     Dosage: 10 MG, QD
     Route: 042
     Dates: start: 20140918, end: 20140918
  7. PEMBROLIZUMAB. [Suspect]
     Active Substance: PEMBROLIZUMAB
     Indication: NEOPLASM MALIGNANT
     Dosage: 10 MG/KG, QOW (Q2W)
     Route: 042
     Dates: start: 20140721, end: 20140819
  8. PEMBROLIZUMAB. [Suspect]
     Active Substance: PEMBROLIZUMAB
     Dosage: 10 MG/KG, QOW (Q2W)
     Route: 042
     Dates: start: 20140918, end: 20140918
  9. EMLA [Concomitant]
     Active Substance: LIDOCAINE\PRILOCAINE
     Indication: DYSURIA
     Dosage: FREQUENCY: CONTINUOUS
     Route: 003
     Dates: start: 20140901, end: 20141001
  10. POLARAMINE [Concomitant]
     Active Substance: DEXCHLORPHENIRAMINE MALEATE
     Indication: PAIN PROPHYLAXIS
     Dosage: 1 AMPULE, QD
     Route: 042
     Dates: start: 20140819
  11. VERSATIS [Concomitant]
     Active Substance: LIDOCAINE
     Indication: PRURITUS
     Dosage: 1 PATCH, QD
     Route: 062
     Dates: start: 20140901, end: 20141001

REACTIONS (1)
  - General physical health deterioration [Recovered/Resolved]

NARRATIVE: CASE EVENT DATE: 20141002
